FAERS Safety Report 9462890 (Version 1)
Quarter: 2013Q3

REPORT INFORMATION
  Report Type: Spontaneous
  Country: FR (occurrence: None)
  Receive Date: 20130814
  Receipt Date: 20130814
  Transmission Date: 20140515
  Serious: Yes (Other)
  Sender: FDA-Public Use
  Company Number: 1837803

PATIENT
  Age: 73 Year
  Sex: Female

DRUGS (10)
  1. GEMCITABINE [Suspect]
     Indication: PANCREATIC CARCINOMA METASTATIC
     Dosage: 1 DAY
     Route: 042
     Dates: start: 20130523, end: 20130614
  2. GEMCITABINE [Suspect]
     Indication: PANCREATIC CARCINOMA METASTATIC
     Dosage: 1 DAY
     Route: 042
     Dates: start: 20130523, end: 20130614
  3. PARACETAMOL [Concomitant]
  4. PANTOPRAZOLE [Concomitant]
  5. MCROGOL 4000 [Concomitant]
  6. TINZAPARIN SODIUM [Concomitant]
  7. ONDANSETRON [Concomitant]
  8. METOCLOPRAMIDE [Concomitant]
  9. PREDNISOLONE [Concomitant]
  10. INSULIN GLARGINE [Concomitant]

REACTIONS (7)
  - Cholestasis [None]
  - Asthenia [None]
  - Deep vein thrombosis [None]
  - Hepatocellular injury [None]
  - Pancreatic carcinoma metastatic [None]
  - Condition aggravated [None]
  - General physical health deterioration [None]
